FAERS Safety Report 24557008 (Version 1)
Quarter: 2024Q4

REPORT INFORMATION
  Report Type: Spontaneous
  Country: FR (occurrence: FR)
  Receive Date: 20241028
  Receipt Date: 20241028
  Transmission Date: 20250115
  Serious: Yes (Hospitalization)
  Sender: AUROBINDO
  Company Number: FR-AFSSAPS-CN2024000947

PATIENT
  Age: 82 Year
  Sex: Male
  Weight: 73 kg

DRUGS (2)
  1. MEMANTINE [Suspect]
     Active Substance: MEMANTINE
     Indication: Dementia Alzheimer^s type
     Dosage: 10 MILLIGRAM, 3 TIMES A DAY [2CP DE 5MG MATIN, MIDI ET SOIR AU LIEU DE 0.5CP /JOUR]
     Route: 048
     Dates: start: 20240806
  2. HALOPERIDOL [Concomitant]
     Active Substance: HALOPERIDOL
     Indication: Dementia Alzheimer^s type
     Dosage: 30 GTT DROPS, ONCE A DAY [10GOUTTES LE MATIN ET 20GOUTTES LE SOIR]
     Route: 048
     Dates: start: 202406

REACTIONS (4)
  - Incorrect dose administered [Recovered/Resolved]
  - Fatigue [Recovered/Resolved]
  - Muscular weakness [Recovered/Resolved]
  - Vertigo [Recovered/Resolved]

NARRATIVE: CASE EVENT DATE: 20240806
